FAERS Safety Report 6905437-4 (Version None)
Quarter: 2010Q3

REPORT INFORMATION
  Report Type: 
  Country: None (occurrence: None)
  Receive Date: 20100804
  Receipt Date: 20100721
  Transmission Date: 20110219
  Serious: Yes (Other)
  Sender: FDA-Public Use
  Company Number: PHHY2010JP48219

PATIENT
  Age: 29 Year
  Sex: Female

DRUGS (1)
  1. AREDIA [Suspect]
     Indication: OSTEOGENESIS IMPERFECTA
     Dosage: UNK

REACTIONS (3)
  - CALCIUM IONISED DECREASED [None]
  - HUMERUS FRACTURE [None]
  - PYREXIA [None]
